FAERS Safety Report 7762477-3 (Version None)
Quarter: 2011Q3

REPORT INFORMATION
  Report Type: 
  Country: None (occurrence: None)
  Receive Date: 20110920
  Receipt Date: 20110915
  Transmission Date: 20111222
  Serious: Yes (Hospitalization, Other)
  Sender: FDA-Public Use
  Company Number: BR-ABBOTT-11P-020-0855502-00

PATIENT

DRUGS (6)
  1. DEFLAZACORT [Concomitant]
     Indication: PAIN
     Dosage: 1 IN 1 DAY IF NECESSARY
     Route: 048
  2. METHOTREXATE [Concomitant]
     Indication: RHEUMATOID ARTHRITIS
     Route: 048
  3. ENALAPRIL MALEATE [Concomitant]
     Indication: RHEUMATOID ARTHRITIS
     Route: 048
  4. HUMIRA [Suspect]
     Indication: RHEUMATOID ARTHRITIS
     Route: 058
     Dates: end: 20110826
  5. SOTALOL HCL [Concomitant]
     Indication: PRODUCT USED FOR UNKNOWN INDICATION
     Route: 048
  6. NAPROXEN [Concomitant]
     Indication: PAIN
     Dosage: 1 IN 1 DAY IF NECESSARY
     Route: 048

REACTIONS (5)
  - MENTAL DISORDER [None]
  - DIPLOPIA [None]
  - EYE HAEMORRHAGE [None]
  - OPTIC NEURITIS [None]
  - ENCEPHALITIS [None]
